FAERS Safety Report 20796258 (Version 2)
Quarter: 2022Q2

REPORT INFORMATION
  Report Type: Spontaneous
  Country: FR (occurrence: FR)
  Receive Date: 20220506
  Receipt Date: 20220518
  Transmission Date: 20220721
  Serious: Yes (Hospitalization)
  Sender: FDA-Public Use
  Company Number: None

PATIENT
  Age: 47 Year
  Sex: Male

DRUGS (30)
  1. CLOZAPINE [Suspect]
     Active Substance: CLOZAPINE
     Indication: Schizophrenia
     Dosage: 100 MILLIGRAM DAILY; 100 MG/D, DURATION 1DAYS
     Route: 048
     Dates: start: 20220208, end: 20220209
  2. CLOZAPINE [Suspect]
     Active Substance: CLOZAPINE
     Dosage: 150 MILLIGRAM DAILY; 150 MG/D, DURATION 1DAYS
     Route: 048
     Dates: start: 20220215, end: 20220216
  3. CLOZAPINE [Suspect]
     Active Substance: CLOZAPINE
     Dosage: 200 MILLIGRAM DAILY; 200 MG/D, DURATION 3DAYS
     Route: 048
     Dates: start: 20220218, end: 20220221
  4. CLOZAPINE [Suspect]
     Active Substance: CLOZAPINE
     Dosage: 175 MILLIGRAM DAILY; 175 MG/D, DURATION 1DAYS
     Route: 048
     Dates: start: 20220217, end: 20220217
  5. CLOZAPINE [Suspect]
     Active Substance: CLOZAPINE
     Dosage: 300 MILLIGRAM DAILY; 300 MG/D
     Route: 048
     Dates: start: 20220227
  6. CLOZAPINE [Suspect]
     Active Substance: CLOZAPINE
     Dosage: 75 MILLIGRAM DAILY; 75 MG/D, DURATION 2DAYS
     Route: 048
     Dates: start: 20220205, end: 20220207
  7. CLOZAPINE [Suspect]
     Active Substance: CLOZAPINE
     Dosage: 125 MILLIGRAM DAILY; 125 MG/D, DURATION 1DAYS
     Route: 048
     Dates: start: 20220210, end: 20220211
  8. CLOZAPINE [Suspect]
     Active Substance: CLOZAPINE
     Dosage: 25 MILLIGRAM DAILY; 25 MG/D, DURATION 1DAYS
     Route: 048
     Dates: start: 20220201, end: 20220202
  9. CLOZAPINE [Suspect]
     Active Substance: CLOZAPINE
     Dosage: 50 MILLIGRAM DAILY; 50 MG/D,DURATION 1DAYS
     Route: 048
     Dates: start: 20220203, end: 20220204
  10. CLOZAPINE [Suspect]
     Active Substance: CLOZAPINE
     Dosage: 250 MILLIGRAM DAILY; 250 MG/D, DURATION 1DAYS
     Route: 048
     Dates: start: 20220224, end: 20220224
  11. OLANZAPINE [Suspect]
     Active Substance: OLANZAPINE
     Indication: Schizophrenia
     Dosage: 30 MILLIGRAM DAILY; 30 MG/D,DURATION 3DAYS
     Route: 048
     Dates: start: 20220104, end: 20220107
  12. OLANZAPINE [Suspect]
     Active Substance: OLANZAPINE
     Dosage: 20 MILLIGRAM DAILY; 20 MG/D, DURATION 7DAYS
     Route: 048
     Dates: start: 20220208, end: 20220215
  13. OLANZAPINE [Suspect]
     Active Substance: OLANZAPINE
     Dosage: 40 MILLIGRAM DAILY; 40 MG/D,DURATION 4DAYS
     Route: 048
     Dates: start: 20220114, end: 20220118
  14. OLANZAPINE [Suspect]
     Active Substance: OLANZAPINE
     Dosage: 45 MILLIGRAM DAILY; 45 MG/D, DURATION 13DAYS
     Route: 048
     Dates: start: 20220119, end: 20220201
  15. OLANZAPINE [Suspect]
     Active Substance: OLANZAPINE
     Dosage: 30 MILLIGRAM DAILY; 30 MG/D,DURATION 5DAYS
     Route: 048
     Dates: start: 20220202, end: 20220207
  16. CHLORPROMAZINE [Suspect]
     Active Substance: CHLORPROMAZINE
     Indication: Schizophrenia
     Dosage: 650 MILLIGRAM DAILY; 650 MG/D
     Route: 048
     Dates: start: 20220114
  17. LOXAPINE SUCCINATE [Suspect]
     Active Substance: LOXAPINE SUCCINATE
     Indication: Schizophrenia
     Dosage: 600 MILLIGRAM DAILY; DURATION 10DAYS
     Route: 048
     Dates: start: 20220104, end: 20220114
  18. LOXAPINE SUCCINATE [Suspect]
     Active Substance: LOXAPINE SUCCINATE
     Dosage: 750 MILLIGRAM DAILY;
     Route: 048
     Dates: start: 20220117
  19. HALOPERIDOL [Suspect]
     Active Substance: HALOPERIDOL
     Indication: Schizophrenia
     Dosage: 20 MILLIGRAM DAILY; DURATION 5DAYS
     Route: 048
     Dates: start: 20220114, end: 20220119
  20. HALOPERIDOL [Suspect]
     Active Substance: HALOPERIDOL
     Dosage: 45 MILLIGRAM DAILY;
     Route: 048
     Dates: start: 20220130
  21. VALPROATE SODIUM [Suspect]
     Active Substance: VALPROATE SODIUM
     Indication: Schizophrenia
     Dosage: 2000 MILLIGRAM DAILY; DURATION 27DAYS
     Route: 048
     Dates: start: 20220104, end: 20220131
  22. VALPROATE SODIUM [Suspect]
     Active Substance: VALPROATE SODIUM
     Dosage: 1000 MILLIGRAM DAILY;
     Route: 048
     Dates: start: 20220201
  23. ATROPINE [Suspect]
     Active Substance: ATROPINE
     Indication: Salivary hypersecretion
     Dosage: 2 DOSAGE FORMS DAILY; 2 DROPS PER DAY
     Route: 048
     Dates: start: 20220221
  24. LITHIUM [Suspect]
     Active Substance: LITHIUM
     Indication: Schizophrenia
     Dosage: 600 MILLIGRAM DAILY; DURATION 12DAYS
     Route: 048
     Dates: start: 20220118, end: 20220130
  25. LITHIUM [Suspect]
     Active Substance: LITHIUM
     Dosage: 800 MILLIGRAM DAILY;
     Route: 048
     Dates: start: 20220131
  26. LITHIUM [Suspect]
     Active Substance: LITHIUM
     Dosage: 400 MILLIGRAM DAILY; DURATION 3DAYS
     Route: 048
     Dates: start: 20220114, end: 20220117
  27. DIAZEPAM [Suspect]
     Active Substance: DIAZEPAM
     Indication: Schizophrenia
     Dosage: 120 DOSAGE FORMS DAILY; 120 DROPS PER DAY
     Route: 048
     Dates: start: 20220216
  28. DIAZEPAM [Suspect]
     Active Substance: DIAZEPAM
     Dosage: 90 DOSAGE FORMS DAILY; 90 DROPS PER DAY,DURATION 42DAYS
     Route: 048
     Dates: start: 20220104, end: 20220215
  29. POLYETHYLENE GLYCOLS [Concomitant]
     Active Substance: POLYETHYLENE GLYCOLS
     Indication: Constipation
     Dosage: 2 DOSAGE FORMS DAILY; 2 SACHETS PER DAY
     Route: 048
     Dates: start: 20220104
  30. LOVENOX [Concomitant]
     Active Substance: ENOXAPARIN SODIUM
     Indication: Product used for unknown indication
     Dosage: 2 DOSAGE FORMS DAILY; 2 SACHETS PER DAY,LOVENOX 4,000 ANTI-XA IU/0.4 ML
     Route: 048
     Dates: start: 20220104

REACTIONS (3)
  - Faecaloma [Recovering/Resolving]
  - Intestinal obstruction [Recovering/Resolving]
  - Peritonitis [Recovering/Resolving]

NARRATIVE: CASE EVENT DATE: 20220201
